FAERS Safety Report 16050371 (Version 1)
Quarter: 2019Q1

REPORT INFORMATION
  Report Type: Report from Study
  Country: US (occurrence: US)
  Receive Date: 20190308
  Receipt Date: 20190308
  Transmission Date: 20190418
  Serious: Yes (Other)
  Sender: FDA-Public Use
  Company Number: US-BIOGEN-2019BI00705229

PATIENT
  Sex: Male

DRUGS (1)
  1. TECFIDERA [Suspect]
     Active Substance: DIMETHYL FUMARATE
     Indication: MULTIPLE SCLEROSIS
     Route: 048
     Dates: start: 2016

REACTIONS (7)
  - Blindness unilateral [Unknown]
  - Sensory loss [Unknown]
  - Depression [Unknown]
  - Neuropathy peripheral [Unknown]
  - Pruritus [Unknown]
  - Apathy [Unknown]
  - Asthenopia [Unknown]
